FAERS Safety Report 14202803 (Version 2)
Quarter: 2017Q4

REPORT INFORMATION
  Report Type: Spontaneous
  Country: KR (occurrence: KR)
  Receive Date: 20171119
  Receipt Date: 20171121
  Transmission Date: 20180321
  Serious: Yes (Other)
  Sender: FDA-Public Use
  Company Number: KR-CONCORDIA PHARMACEUTICALS INC.-GSH201711-006404

PATIENT
  Age: 60 Year
  Sex: Female

DRUGS (3)
  1. ACETAZOLAMIDE. [Suspect]
     Active Substance: ACETAZOLAMIDE
     Indication: CYSTOID MACULAR OEDEMA
  2. HYDROXYCHLOROQUINE [Suspect]
     Active Substance: HYDROXYCHLOROQUINE
     Indication: SYSTEMIC LUPUS ERYTHEMATOSUS
     Route: 065
  3. ACETAZOLAMIDE. [Suspect]
     Active Substance: ACETAZOLAMIDE
     Indication: RETINOPATHY
     Route: 048

REACTIONS (9)
  - Retinal toxicity [Unknown]
  - Vision blurred [Unknown]
  - Cystoid macular oedema [Recovered/Resolved]
  - Off label use [Unknown]
  - Retinal degeneration [Unknown]
  - Retinal disorder [Unknown]
  - Retinopathy [Unknown]
  - Visual field defect [Unknown]
  - Visual acuity reduced [Unknown]
